FAERS Safety Report 7831647-8 (Version None)
Quarter: 2011Q4

REPORT INFORMATION
  Report Type: 
  Country: None (occurrence: None)
  Receive Date: 20111021
  Receipt Date: 20111017
  Transmission Date: 20120403
  Serious: Yes (Hospitalization, Other)
  Sender: FDA-Public Use
  Company Number: US-CELGENEUS-163-21880-11070171

PATIENT
  Sex: Male

DRUGS (15)
  1. BISACODYL [Concomitant]
     Dosage: 5 MILLIGRAM
     Route: 048
  2. REVLIMID [Suspect]
     Dosage: 10 MILLIGRAM
     Route: 048
     Dates: start: 20110603, end: 20110629
  3. FINASTERIDE [Concomitant]
     Dosage: 5 MILLIGRAM
     Route: 048
  4. SINEMET [Suspect]
     Indication: PARKINSON'S DISEASE
     Dosage: 25-100MG
     Route: 048
  5. VITAMIN D [Concomitant]
     Dosage: 400 UNITS
     Route: 048
  6. SEROQUEL [Concomitant]
     Indication: PARKINSON'S DISEASE
     Route: 065
  7. ASPIRIN [Concomitant]
     Route: 065
  8. PRAVASTATIN SODIUM [Concomitant]
     Dosage: 20 MILLIGRAM
     Route: 048
  9. REVLIMID [Suspect]
     Dosage: 10 MILLIGRAM
     Route: 048
     Dates: start: 20110711
  10. QUETIAPINE [Concomitant]
     Dosage: 1.5 TAB
     Route: 048
  11. POLYETHYLENE GLYCOL [Concomitant]
     Dosage: 17 GRAM
     Route: 048
  12. SINEMET [Suspect]
     Dosage: 50/200
     Route: 048
  13. DOCUSATE SODIUM [Concomitant]
     Dosage: 100 MILLIGRAM
     Route: 048
  14. LODOSYN [Concomitant]
     Indication: PARKINSON'S DISEASE
     Dosage: 25 MILLIGRAM
     Route: 048
  15. PREVACID [Concomitant]
     Dosage: 2 CAPSULE
     Route: 048

REACTIONS (7)
  - MEMORY IMPAIRMENT [None]
  - HAEMOGLOBIN DECREASED [None]
  - MENTAL STATUS CHANGES [None]
  - DRUG INTERACTION [None]
  - CONSTIPATION [None]
  - URINARY RETENTION [None]
  - CONFUSIONAL STATE [None]
